FAERS Safety Report 23980190 (Version 1)
Quarter: 2024Q2

REPORT INFORMATION
  Report Type: Spontaneous
  Country: TW (occurrence: TW)
  Receive Date: 20240617
  Receipt Date: 20240617
  Transmission Date: 20240716
  Serious: Yes (Hospitalization, Other)
  Sender: FDA-Public Use
  Company Number: TW-IPCA LABORATORIES LIMITED-IPC-2024-TW-001458

PATIENT

DRUGS (14)
  1. QUETIAPINE [Interacting]
     Active Substance: QUETIAPINE
     Indication: Agitation
     Dosage: 75 MILLIGRAM, QD
     Route: 065
  2. QUETIAPINE [Interacting]
     Active Substance: QUETIAPINE
     Indication: Euphoric mood
     Dosage: 25 MILLIGRAM, BID
     Route: 065
  3. QUETIAPINE [Interacting]
     Active Substance: QUETIAPINE
     Indication: Behaviour disorder
     Dosage: 25 MILLIGRAM ONE BEFORE BED
     Route: 065
  4. QUETIAPINE [Interacting]
     Active Substance: QUETIAPINE
     Dosage: 175 MILLIGRAM, QD
     Route: 065
  5. QUETIAPINE [Interacting]
     Active Substance: QUETIAPINE
     Dosage: 100 MILLIGRAM, QD
     Route: 065
  6. PAROXETINE [Interacting]
     Active Substance: PAROXETINE
     Indication: Depressed mood
     Dosage: 10 MILLIGRAM
     Route: 065
  7. PAROXETINE [Interacting]
     Active Substance: PAROXETINE
     Dosage: 20 MILLIGRAM, QD
     Route: 065
  8. RISPERIDONE [Interacting]
     Active Substance: RISPERIDONE
     Indication: Jealous delusion
     Dosage: 2 MILLIGRAM, QD
     Route: 065
  9. RISPERIDONE [Interacting]
     Active Substance: RISPERIDONE
     Dosage: 1 MILLIGRAM, QD
     Route: 065
  10. RISPERIDONE [Interacting]
     Active Substance: RISPERIDONE
     Dosage: 0.25 MILLIGRAM, QD
     Route: 065
  11. NALTREXONE [Interacting]
     Active Substance: NALTREXONE
     Indication: Alcohol use disorder
     Dosage: 50 MILLIGRAM
     Route: 048
  12. NALTREXONE [Interacting]
     Active Substance: NALTREXONE
     Indication: Alcoholic psychosis
     Dosage: UNK
     Route: 048
  13. BIPERIDEN [Interacting]
     Active Substance: BIPERIDEN
     Indication: Product used for unknown indication
     Dosage: UNK
     Route: 065
  14. LORAZEPAM [Interacting]
     Active Substance: LORAZEPAM
     Indication: Alcohol withdrawal syndrome
     Dosage: 1 MILLIGRAM, QID
     Route: 065

REACTIONS (3)
  - Serotonin syndrome [Recovered/Resolved]
  - Autonomic nervous system imbalance [Recovered/Resolved]
  - Drug interaction [Unknown]
